FAERS Safety Report 16978482 (Version 1)
Quarter: 2019Q4

REPORT INFORMATION
  Report Type: Spontaneous
  Country: IN (occurrence: IN)
  Receive Date: 20191031
  Receipt Date: 20191031
  Transmission Date: 20200122
  Serious: Yes (Other)
  Sender: FDA-Public Use
  Company Number: IN-ROCHE-2457819

PATIENT
  Age: 6 Year
  Sex: Female

DRUGS (3)
  1. METHOTREXATE. [Concomitant]
     Active Substance: METHOTREXATE
     Route: 058
  2. GANCICLOVIR. [Suspect]
     Active Substance: GANCICLOVIR
     Indication: CYTOMEGALOVIRUS INFECTION
     Route: 051
  3. PREDNISOLONE. [Concomitant]
     Active Substance: PREDNISOLONE
     Route: 048

REACTIONS (4)
  - Cytomegalovirus infection [Recovered/Resolved]
  - Off label use [Unknown]
  - Cytomegalovirus colitis [Unknown]
  - Intentional product use issue [Unknown]
